FAERS Safety Report 9426370 (Version 1)
Quarter: 2013Q3

REPORT INFORMATION
  Report Type: Spontaneous
  Country: US (occurrence: None)
  Receive Date: 20130729
  Receipt Date: 20130729
  Transmission Date: 20140515
  Serious: No
  Sender: FDA-Public Use
  Company Number: None

PATIENT
  Age: 42 Year
  Sex: Male

DRUGS (1)
  1. DEPAKOTE [Suspect]
     Dates: start: 20120422, end: 20120611

REACTIONS (2)
  - Drug-induced liver injury [None]
  - Hepatitis C [None]
